FAERS Safety Report 5374700-3 (Version None)
Quarter: 2007Q2

REPORT INFORMATION
  Report Type: 
  Country: None (occurrence: None)
  Receive Date: 20070627
  Receipt Date: 20070627
  Transmission Date: 20071010
  Serious: No
  Sender: FDA-Public Use
  Company Number: None

PATIENT
  Age: 54 Year
  Sex: Female
  Weight: 83.6 kg

DRUGS (5)
  1. MAGNEVIST [Suspect]
     Indication: NUCLEAR MAGNETIC RESONANCE IMAGING
     Dosage: 18 ML IV
     Route: 042
     Dates: start: 20061226
  2. NEXIUM [Concomitant]
  3. CRESTOR [Concomitant]
  4. FOSAMAX [Concomitant]
  5. AMBIEN [Concomitant]

REACTIONS (2)
  - CHEST PAIN [None]
  - RASH [None]
